FAERS Safety Report 11197623 (Version 1)
Quarter: 2015Q2

REPORT INFORMATION
  Report Type: Spontaneous
  Country: US (occurrence: US)
  Receive Date: 20150617
  Receipt Date: 20150617
  Transmission Date: 20150821
  Serious: No
  Sender: FDA-Public Use
  Company Number: US-009507513-1506USA000469

PATIENT
  Sex: Female
  Weight: 68.21 kg

DRUGS (1)
  1. NEXPLANON [Suspect]
     Active Substance: ETONOGESTREL
     Indication: CONTRACEPTION
     Dosage: 1ROD/3YEARS
     Route: 059
     Dates: start: 20140207

REACTIONS (2)
  - Device breakage [Not Recovered/Not Resolved]
  - Menstruation irregular [Unknown]
